FAERS Safety Report 9147182 (Version 1)
Quarter: 2013Q1

REPORT INFORMATION
  Report Type: Spontaneous
  Country: NO (occurrence: None)
  Receive Date: 20130211
  Receipt Date: 20130211
  Transmission Date: 20140127
  Serious: Yes (Death)
  Sender: FDA-Public Use
  Company Number: 2013-01837

PATIENT
  Age: 38 Year
  Sex: Female

DRUGS (3)
  1. ACETAMINOPHEN-CODEINE PHOSPHATE (UNKNOWN) (ACETAMINOPHE, CODEINE PHOSPHATE) UNK, UNKUNK [Suspect]
     Indication: PRODUCT USED FOR UNKNOWN INDICATION
     Dosage: UNK,  UNKNOWN
  2. CARISOPRODOL (WATSON LABORATORIES) (CARISOPRODOL) UNK, UNKUNK [Suspect]
     Indication: PRODUCT USED FOR UNKNOWN INDICATION
     Dosage: UNK, UNKNOWN
  3. MEPROBAMATE (WATSON LABORATORIES) (MEPROBAMATE) TABLET [Suspect]
     Indication: PRODUCT USED FOR UNKNOWN INDICATION
     Dosage: UNK,  UNKNOWN

REACTIONS (2)
  - Toxicity to various agents [None]
  - Overdose [None]
